FAERS Safety Report 7159672-3 (Version None)
Quarter: 2010Q4

REPORT INFORMATION
  Report Type: 
  Country: None (occurrence: None)
  Receive Date: 20101214
  Receipt Date: 20101012
  Transmission Date: 20110411
  Serious: No
  Sender: FDA-Public Use
  Company Number: US-ASTRAZENECA-2010SE48363

PATIENT
  Sex: Female

DRUGS (4)
  1. CRESTOR [Suspect]
     Route: 048
     Dates: start: 20100801
  2. CRESTOR [Suspect]
     Route: 048
  3. ATENOLOL [Concomitant]
  4. BYSTOLIC [Concomitant]

REACTIONS (2)
  - DYSPNOEA [None]
  - FATIGUE [None]
